FAERS Safety Report 4489727-3 (Version None)
Quarter: 2004Q4

REPORT INFORMATION
  Report Type: 
  Country: None (occurrence: None)
  Receive Date: 20041101
  Receipt Date: 20030130
  Transmission Date: 20050328
  Serious: Yes (Hospitalization)
  Sender: FDA-Public Use
  Company Number: US-MERCK-0301USA03195

PATIENT
  Age: 52 Year
  Sex: Female
  Weight: 80 kg

DRUGS (18)
  1. VIOXX [Suspect]
     Indication: PAIN IN EXTREMITY
     Route: 048
     Dates: start: 20010620, end: 20010911
  2. ASPIRIN [Concomitant]
     Indication: CEREBROVASCULAR ACCIDENT PROPHYLAXIS
     Route: 065
     Dates: start: 19930601
  3. ASPIRIN [Concomitant]
     Indication: PROPHYLAXIS
     Route: 065
     Dates: start: 19930601
  4. LIPITOR [Concomitant]
     Indication: BLOOD CHOLESTEROL INCREASED
     Route: 065
     Dates: start: 20010601
  5. PROMETRIUM [Concomitant]
     Route: 065
     Dates: start: 20010101
  6. VIVELLE [Concomitant]
     Route: 061
  7. VIVELLE [Concomitant]
     Route: 061
  8. ZYRTEC [Concomitant]
     Indication: HYPERSENSITIVITY
     Route: 065
  9. FIORICET TABLETS [Concomitant]
     Indication: MIGRAINE
     Route: 065
     Dates: start: 20010501
  10. FIORICET TABLETS [Concomitant]
     Indication: HEADACHE
     Route: 065
     Dates: start: 20010501
  11. AMBIEN [Concomitant]
     Indication: INSOMNIA
     Route: 065
  12. MOTRIN [Concomitant]
     Route: 065
     Dates: start: 19890101
  13. PAXIL [Concomitant]
     Route: 065
  14. PRILOSEC [Concomitant]
     Route: 065
  15. ALPRAZOLAM [Concomitant]
     Indication: ANXIETY
     Route: 065
  16. VITAMIN E [Concomitant]
     Route: 065
  17. GNC WOMENS ULTRA MEGA [Concomitant]
     Route: 065
  18. LECITHIN [Concomitant]
     Route: 065

REACTIONS (39)
  - ABDOMINAL PAIN [None]
  - ANGINA UNSTABLE [None]
  - ARTERIOSPASM CORONARY [None]
  - ARTHRALGIA [None]
  - BACK PAIN [None]
  - CHEST PAIN [None]
  - CORONARY ARTERY DISEASE [None]
  - CYSTOCELE [None]
  - DEEP VEIN THROMBOSIS [None]
  - DEHYDRATION [None]
  - DIVERTICULITIS [None]
  - DIVERTICULUM [None]
  - DYSFUNCTIONAL UTERINE BLEEDING [None]
  - DYSPEPSIA [None]
  - DYSPNOEA [None]
  - DYSURIA [None]
  - FLANK PAIN [None]
  - GASTROENTERITIS [None]
  - GENERALISED ANXIETY DISORDER [None]
  - HAEMATURIA [None]
  - HAEMORRHOIDS [None]
  - HOT FLUSH [None]
  - INJURY [None]
  - MENOPAUSAL SYMPTOMS [None]
  - MYOCARDIAL INFARCTION [None]
  - NAUSEA [None]
  - NECK PAIN [None]
  - NON-CARDIAC CHEST PAIN [None]
  - PHLEBITIS SUPERFICIAL [None]
  - POSTOPERATIVE ILEUS [None]
  - RECTAL POLYP [None]
  - RHINITIS ALLERGIC [None]
  - ROSACEA [None]
  - SINUSITIS [None]
  - STRESS INCONTINENCE [None]
  - URINARY TRACT INFECTION [None]
  - VENOUS INSUFFICIENCY [None]
  - VERTIGO [None]
  - WEIGHT INCREASED [None]
